FAERS Safety Report 13444976 (Version 1)
Quarter: 2017Q2

REPORT INFORMATION
  Report Type: Report from Study
  Country: CA (occurrence: CA)
  Receive Date: 20170414
  Receipt Date: 20170414
  Transmission Date: 20170830
  Serious: Yes (Death, Hospitalization)
  Sender: FDA-Public Use
  Company Number: PHHY2016CA077642

PATIENT
  Sex: Female

DRUGS (1)
  1. AFINITOR [Suspect]
     Active Substance: EVEROLIMUS
     Indication: BREAST CANCER
     Dosage: 2.5 MG, QD
     Route: 048
     Dates: start: 201606

REACTIONS (9)
  - Epistaxis [Unknown]
  - Abdominal pain upper [Unknown]
  - Hot flush [Unknown]
  - Death [Fatal]
  - Fatigue [Unknown]
  - Diarrhoea [Unknown]
  - Pain in extremity [Unknown]
  - Vomiting [Unknown]
  - Contusion [Unknown]
